FAERS Safety Report 10566794 (Version 3)
Quarter: 2014Q4

REPORT INFORMATION
  Report Type: Report from Study
  Country: AR (occurrence: AR)
  Receive Date: 20141105
  Receipt Date: 20141110
  Transmission Date: 20150529
  Serious: Yes (Hospitalization)
  Sender: FDA-Public Use
  Company Number: AR-ASTRAZENECA-2014SE74075

PATIENT
  Age: 25724 Day
  Sex: Male
  Weight: 70.8 kg

DRUGS (1)
  1. AZD6140 [Suspect]
     Active Substance: TICAGRELOR
     Indication: PERIPHERAL ARTERIAL OCCLUSIVE DISEASE
     Route: 048
     Dates: start: 20130926

REACTIONS (1)
  - Haemorrhagic erosive gastritis [Recovered/Resolved]

NARRATIVE: CASE EVENT DATE: 20140829
